FAERS Safety Report 14540830 (Version 1)
Quarter: 2018Q1

REPORT INFORMATION
  Report Type: Spontaneous
  Country: AU (occurrence: AU)
  Receive Date: 20180216
  Receipt Date: 20180216
  Transmission Date: 20180509
  Serious: Yes (Hospitalization)
  Sender: FDA-Public Use
  Company Number: AU-OTSUKA-DJ20060893

PATIENT

DRUGS (2)
  1. ABILIFY [Suspect]
     Active Substance: ARIPIPRAZOLE
     Indication: SCHIZOPHRENIA
     Dosage: 5 MG, UNK
     Route: 048
     Dates: start: 200603, end: 200605
  2. ABILIFY [Suspect]
     Active Substance: ARIPIPRAZOLE
     Indication: SCHIZOPHRENIA
     Dosage: 10 MG, UNK
     Route: 048
     Dates: start: 200605

REACTIONS (7)
  - Cyanosis [Unknown]
  - Exercise tolerance decreased [Unknown]
  - Cardiac dysfunction [Unknown]
  - Dyspnoea [Unknown]
  - Oedema peripheral [Unknown]
  - Inappropriate antidiuretic hormone secretion [Unknown]
  - Cardiac failure [Unknown]

NARRATIVE: CASE EVENT DATE: 200605
